FAERS Safety Report 7137116-5 (Version None)
Quarter: 2010Q4

REPORT INFORMATION
  Report Type: 
  Country: None (occurrence: None)
  Receive Date: 20101206
  Receipt Date: 20071018
  Transmission Date: 20110411
  Serious: Yes (Death)
  Sender: FDA-Public Use
  Company Number: US-ACTELION-A-US2006-16126

PATIENT

DRUGS (5)
  1. ILOPROST INHALATION SOLUTION 5UG US [Suspect]
     Indication: PULMONARY ARTERIAL HYPERTENSION
     Dosage: 5 UG, 6-9 X DAY
     Route: 055
     Dates: start: 20060703, end: 20070728
  2. TRACLEER [Concomitant]
     Indication: PULMONARY HYPERTENSION
  3. REVATIO [Concomitant]
     Indication: PULMONARY HYPERTENSION
  4. FOLIC ACID [Concomitant]
  5. FERROUS SULFATE [Concomitant]

REACTIONS (3)
  - DEATH [None]
  - FLUSHING [None]
  - HEADACHE [None]
